FAERS Safety Report 11882014 (Version 1)
Quarter: 2015Q4

REPORT INFORMATION
  Report Type: Spontaneous
  Country: US (occurrence: US)
  Receive Date: 20151231
  Receipt Date: 20151231
  Transmission Date: 20160305
  Serious: Yes (Hospitalization)
  Sender: FDA-Public Use
  Company Number: US-JNJFOC-20151224596

PATIENT
  Age: 70 Year
  Sex: Female

DRUGS (2)
  1. INVOKANA [Suspect]
     Active Substance: CANAGLIFLOZIN
     Indication: TYPE 2 DIABETES MELLITUS
     Route: 048
     Dates: start: 201503, end: 201509
  2. GLUCOTROL [Concomitant]
     Active Substance: GLIPIZIDE
     Indication: TYPE 2 DIABETES MELLITUS
     Route: 048

REACTIONS (5)
  - Acute kidney injury [Unknown]
  - Diarrhoea [Unknown]
  - Renal tubular necrosis [Unknown]
  - Mycobacterium avium complex infection [Unknown]
  - Dehydration [Unknown]

NARRATIVE: CASE EVENT DATE: 2015
